FAERS Safety Report 5646315-0 (Version None)
Quarter: 2008Q1

REPORT INFORMATION
  Report Type: 
  Country: None (occurrence: None)
  Receive Date: 20080227
  Receipt Date: 20080214
  Transmission Date: 20080703
  Serious: Yes (Hospitalization)
  Sender: FDA-Public Use
  Company Number: 2008BI004055

PATIENT
  Age: 37 Year
  Sex: Male

DRUGS (1)
  1. TYSABRI [Suspect]
     Indication: RELAPSING-REMITTING MULTIPLE SCLEROSIS
     Dosage: 300 MG; QM;
     Dates: start: 20070920

REACTIONS (7)
  - BLOOD BILIRUBIN INCREASED [None]
  - DIARRHOEA [None]
  - NAUSEA [None]
  - PANCREATIC DISORDER [None]
  - RENAL COLIC [None]
  - ULCER [None]
  - VOMITING [None]
